FAERS Safety Report 11667461 (Version 2)
Quarter: 2016Q3

REPORT INFORMATION
  Report Type: Spontaneous
  Country: HR (occurrence: HR)
  Receive Date: 20151027
  Receipt Date: 20160817
  Transmission Date: 20161109
  Serious: Yes (Death)
  Sender: FDA-Public Use
  Company Number: HR-JNJFOC-20151015311

PATIENT
  Age: 2 Year
  Sex: Female
  Weight: 12 kg

DRUGS (1)
  1. DUROGESIC [Suspect]
     Active Substance: FENTANYL
     Indication: PRODUCT USED FOR UNKNOWN INDICATION
     Route: 062

REACTIONS (8)
  - Somnolence [Unknown]
  - Dyspnoea [Recovered/Resolved]
  - Snoring [Unknown]
  - Toxicity to various agents [Fatal]
  - Drug administered at inappropriate site [Fatal]
  - Intentional product misuse [Fatal]
  - Drug diversion [Fatal]
  - Wheezing [Unknown]
